FAERS Safety Report 8600380-7 (Version None)
Quarter: 2012Q3

REPORT INFORMATION
  Report Type: 
  Country: None (occurrence: None)
  Receive Date: 20120817
  Receipt Date: 20120813
  Transmission Date: 20120928
  Serious: No
  Sender: FDA-Public Use
  Company Number: US-PFIZER INC-2012184059

PATIENT
  Age: 58 Year
  Sex: Female
  Weight: 68.027 kg

DRUGS (2)
  1. ZITHROMAX [Suspect]
     Indication: UPPER RESPIRATORY TRACT INFECTION
     Dosage: 250 MG, UNK
  2. ZITHROMAX [Suspect]
     Indication: INFLUENZA

REACTIONS (5)
  - ORAL CANDIDIASIS [None]
  - FLUSHING [None]
  - FUNGAL INFECTION [None]
  - RASH [None]
  - MALAISE [None]
